FAERS Safety Report 9857228 (Version 1)
Quarter: 2014Q1

REPORT INFORMATION
  Report Type: Report from Study
  Country: BE (occurrence: BE)
  Receive Date: 20140130
  Receipt Date: 20140130
  Transmission Date: 20141002
  Serious: Yes (Death)
  Sender: FDA-Public Use
  Company Number: BE-BAXTER-2014BAX004811

PATIENT
  Sex: 0

DRUGS (3)
  1. HOLOXAN [Suspect]
     Indication: NON-SMALL CELL LUNG CANCER
     Dosage: 3 G/M2 DAY 1
     Route: 042
  2. GEMCITABINE [Suspect]
     Indication: NON-SMALL CELL LUNG CANCER
     Dosage: 1 G/M2 DAYS 1+8
     Route: 042
  3. CISPLATIN [Suspect]
     Indication: NON-SMALL CELL LUNG CANCER
     Dosage: DAY 1
     Route: 042

REACTIONS (1)
  - Death [Fatal]
